FAERS Safety Report 7312825-3 (Version None)
Quarter: 2011Q1

REPORT INFORMATION
  Report Type: 
  Country: None (occurrence: None)
  Receive Date: 20110224
  Receipt Date: 20100615
  Transmission Date: 20110831
  Serious: No
  Sender: FDA-Public Use
  Company Number: US-MYLANLABS-2010S1010836

PATIENT
  Age: 46 Year
  Sex: Female
  Weight: 58.06 kg

DRUGS (2)
  1. DIAZEPAM [Concomitant]
     Indication: ANXIETY
  2. METOPROLOL TARTRATE [Suspect]
     Indication: TACHYCARDIA
     Route: 048
     Dates: start: 20070101

REACTIONS (2)
  - PHOTOSENSITIVITY REACTION [None]
  - FEELING HOT [None]
